FAERS Safety Report 7148780 (Version 4)
Quarter: 2012Q4

REPORT INFORMATION
  Report Type: 
  Country: ES (occurrence: ES)
  Receive Date: 20091014
  Receipt Date: 20121030
  Transmission Date: 20130627
  Serious: Yes (Death, Other)
  Sender: FDA-Public Use
  Company Number: ES-JNJFOC-20091001459

PATIENT
  Age: 8 Year
  Sex: Male

DRUGS (6)
  1. REMICADE [Suspect]
     Indication: GRANULOMA
     Route: 042
     Dates: start: 200804
  2. REMICADE [Suspect]
     Indication: IMMUNODEFICIENCY
     Route: 042
     Dates: start: 200804
  3. CORTICOSTEROIDS [Concomitant]
     Indication: GRANULOMA
  4. CORTICOSTEROIDS [Concomitant]
     Indication: IMMUNODEFICIENCY
  5. IMMUNOGLOBULINS [Concomitant]
     Indication: GRANULOMA
  6. IMMUNOGLOBULINS [Concomitant]
     Indication: IMMUNODEFICIENCY

REACTIONS (7)
  - Condition aggravated [Unknown]
  - Sepsis [Fatal]
  - Off label use [Unknown]
  - Pneumonia [Fatal]
  - Renal failure [Not Recovered/Not Resolved]
  - Granuloma [Not Recovered/Not Resolved]
  - Immunodeficiency [Not Recovered/Not Resolved]
